FAERS Safety Report 9358584 (Version 1)
Quarter: 2013Q2

REPORT INFORMATION
  Report Type: Spontaneous
  Country: PR (occurrence: PR)
  Receive Date: 20130620
  Receipt Date: 20130620
  Transmission Date: 20140414
  Serious: Yes (Death, Other)
  Sender: FDA-Public Use
  Company Number: PR-BAYER-2013-075256

PATIENT
  Age: 76 Year
  Sex: Male
  Weight: 104.31 kg

DRUGS (1)
  1. GADAVIST [Suspect]
     Dosage: 11 ML, ONCE
     Route: 042
     Dates: start: 20130617, end: 20130617

REACTIONS (4)
  - Death [Fatal]
  - Exophthalmos [None]
  - Dyspnoea [None]
  - Inflammation [None]
